FAERS Safety Report 15867298 (Version 1)
Quarter: 2019Q1

REPORT INFORMATION
  Report Type: Spontaneous
  Country: US (occurrence: US)
  Receive Date: 20190102
  Receipt Date: 20190102
  Transmission Date: 20190417
  Serious: No
  Sender: FDA-Public Use
  Company Number: None

PATIENT
  Age: 64 Year
  Sex: Female
  Weight: 66.68 kg

DRUGS (2)
  1. ESTRADIOL 0.375MG/24HR PATCH BI-WEEKLY [Suspect]
     Active Substance: ESTRADIOL
     Indication: HORMONE REPLACEMENT THERAPY
     Dosage: TRANSDERMAL
     Route: 023
  2. ESTRADIOL 0.375MG/24HR PATCH BI-WEEKLY [Suspect]
     Active Substance: ESTRADIOL
     Indication: MENOPAUSE

REACTIONS (5)
  - Scratch [None]
  - Product substitution issue [None]
  - Skin ulcer [None]
  - Application site pruritus [None]
  - Product adhesion issue [None]

NARRATIVE: CASE EVENT DATE: 20181211
